FAERS Safety Report 6532556-7 (Version None)
Quarter: 2010Q1

REPORT INFORMATION
  Report Type: 
  Country: None (occurrence: None)
  Receive Date: 20100104
  Receipt Date: 20091211
  Transmission Date: 20100710
  Serious: Yes (Other)
  Sender: FDA-Public Use
  Company Number: THYM-1001212

PATIENT
  Age: 26 Year
  Sex: Male

DRUGS (1)
  1. THYMOGLOBULIN [Suspect]
     Indication: LIVER TRANSPLANT REJECTION
     Dosage: INTRAVENOUS
     Route: 042

REACTIONS (2)
  - DRUG SPECIFIC ANTIBODY PRESENT [None]
  - LIVER TRANSPLANT REJECTION [None]
